FAERS Safety Report 20584732 (Version 1)
Quarter: 2022Q1

REPORT INFORMATION
  Report Type: Spontaneous
  Country: US (occurrence: US)
  Receive Date: 20220311
  Receipt Date: 20220311
  Transmission Date: 20220424
  Serious: Yes (Other)
  Sender: FDA-Public Use
  Company Number: US-TEVA-2022-US-2014002

PATIENT
  Sex: Female

DRUGS (3)
  1. LORAZEPAM [Suspect]
     Active Substance: LORAZEPAM
     Dosage: A 1/2 A TABLET THREE TIMES PER DAY
     Route: 065
  2. MONTELUKAST [Suspect]
     Active Substance: MONTELUKAST SODIUM
     Route: 065
  3. WARFARIN [Concomitant]
     Active Substance: WARFARIN

REACTIONS (5)
  - Stevens-Johnson syndrome [Recovered/Resolved]
  - Infection [Recovered/Resolved]
  - International normalised ratio increased [Recovered/Resolved]
  - Staphylococcal infection [Unknown]
  - Wrong technique in product usage process [Unknown]
